FAERS Safety Report 6811348-5 (Version None)
Quarter: 2010Q2

REPORT INFORMATION
  Report Type: 
  Country: None (occurrence: None)
  Receive Date: 20100630
  Receipt Date: 20100209
  Transmission Date: 20101027
  Serious: No
  Sender: FDA-Public Use
  Company Number: US-AMGEN-KDL394132

PATIENT
  Sex: Male
  Weight: 86.3 kg

DRUGS (9)
  1. PROCRIT [Suspect]
     Indication: RENAL FAILURE CHRONIC
     Route: 058
     Dates: start: 20081201, end: 20091001
  2. VENOFER [Concomitant]
     Dates: start: 20081201, end: 20091001
  3. ZETIA [Concomitant]
     Route: 048
  4. ASPIRIN [Concomitant]
     Route: 048
  5. FUROSEMIDE [Concomitant]
     Route: 048
  6. POTASSIUM [Concomitant]
     Route: 048
  7. CARVEDILOL [Concomitant]
     Route: 048
  8. TICLID [Concomitant]
  9. LISINOPRIL [Concomitant]

REACTIONS (7)
  - DRY SKIN [None]
  - INCREASED UPPER AIRWAY SECRETION [None]
  - NASOPHARYNGITIS [None]
  - PRURITUS [None]
  - RASH ERYTHEMATOUS [None]
  - SKIN DISCOLOURATION [None]
  - SKIN EXFOLIATION [None]
